FAERS Safety Report 11632357 (Version 5)
Quarter: 2015Q4

REPORT INFORMATION
  Report Type: Spontaneous
  Country: AU (occurrence: AU)
  Receive Date: 20151015
  Receipt Date: 20151125
  Transmission Date: 20160304
  Serious: Yes (Hospitalization, Other)
  Sender: FDA-Public Use
  Company Number: AU-AMGEN-AUSSP2015106646

PATIENT
  Sex: Female

DRUGS (1)
  1. PROLIA [Suspect]
     Active Substance: DENOSUMAB
     Indication: OSTEOPOROSIS POSTMENOPAUSAL
     Dosage: 60 MG, Q6MO
     Route: 065
     Dates: start: 201102

REACTIONS (5)
  - Parathyroidectomy [Unknown]
  - Drug dose omission [Unknown]
  - Drug effect decreased [Unknown]
  - Hypercalcaemia [Recovered/Resolved]
  - Confusional state [Unknown]
